FAERS Safety Report 14014295 (Version 1)
Quarter: 2017Q3

REPORT INFORMATION
  Report Type: Spontaneous
  Country: CH (occurrence: CH)
  Receive Date: 20170927
  Receipt Date: 20170927
  Transmission Date: 20171128
  Serious: Yes (Hospitalization)
  Sender: FDA-Public Use
  Company Number: CH-UCBSA-2016026836

PATIENT
  Age: 60 Year
  Sex: Male

DRUGS (10)
  1. CANCIDAS [Suspect]
     Active Substance: CASPOFUNGIN ACETATE
     Indication: PNEUMONIA
     Dosage: 50 MG, ONCE DAILY (QD)  (INFUSION AMPOULES, DRY VIALS/BOTTLES)
     Route: 040
     Dates: start: 20160624, end: 20160705
  2. VIMPAT [Suspect]
     Active Substance: LACOSAMIDE
     Dosage: 200 MG, 2X/DAY (BID)
     Route: 048
  3. NEXIUM [Concomitant]
     Active Substance: ESOMEPRAZOLE MAGNESIUM
     Indication: PRODUCT USED FOR UNKNOWN INDICATION
     Dosage: 20 MG, ONCE DAILY (QD)
     Route: 048
  4. KEPPRA [Concomitant]
     Active Substance: LEVETIRACETAM
     Indication: PRODUCT USED FOR UNKNOWN INDICATION
     Dosage: 1 G, 2X/DAY (BID)
     Route: 048
     Dates: start: 20160628
  5. MEROPENEM TRIHYDRATE [Concomitant]
     Active Substance: MEROPENEM
     Indication: PNEUMONIA
     Dosage: 1 G, 2X/DAY (BID)
     Route: 042
     Dates: start: 20160627, end: 20160704
  6. PREDNISON STREULI [Suspect]
     Active Substance: PREDNISONE
     Indication: LIVER TRANSPLANT
     Dosage: 15 MG, ONCE DAILY (QD)
     Route: 048
     Dates: start: 20160621
  7. PIPERACILLIN/TAZOBACTAM [Concomitant]
     Active Substance: PIPERACILLIN SODIUM\TAZOBACTAM SODIUM
     Indication: PNEUMONIA
     Dosage: 4.5 G, 3X/DAY (TID)
     Dates: start: 20170624, end: 20170627
  8. SANDOSTATIN [Suspect]
     Active Substance: OCTREOTIDE ACETATE
     Indication: LIVER TRANSPLANT
     Dosage: 50 ?G, HOURLY (0,05 MG/ML),VIALS
     Route: 058
     Dates: start: 20160621, end: 20160710
  9. VIMPAT [Suspect]
     Active Substance: LACOSAMIDE
     Indication: EPILEPSY
     Dosage: 100 MG, 2X/DAY (BID)
     Route: 048
     Dates: start: 20160628
  10. PROGRAF [Suspect]
     Active Substance: TACROLIMUS\TACROLIMUS ANHYDROUS
     Indication: LIVER TRANSPLANT
     Dosage: 1 MG, 2X/DAY (BID)
     Route: 048
     Dates: start: 20160621, end: 20160701

REACTIONS (1)
  - Sinus bradycardia [Not Recovered/Not Resolved]

NARRATIVE: CASE EVENT DATE: 201606
